FAERS Safety Report 8562391-X (Version None)
Quarter: 2012Q3

REPORT INFORMATION
  Report Type: 
  Country: None (occurrence: None)
  Receive Date: 20120802
  Receipt Date: 20120702
  Transmission Date: 20120928
  Serious: No
  Sender: FDA-Public Use
  Company Number: US-AMGEN-USASP2012040676

PATIENT
  Age: 64 Year
  Sex: Female

DRUGS (2)
  1. ANTIBIOTICS [Concomitant]
     Dosage: UNK
  2. ENBREL [Suspect]
     Indication: PSORIATIC ARTHROPATHY
     Dosage: UNK
     Dates: start: 20030301

REACTIONS (3)
  - TOOTH EXTRACTION [None]
  - CANDIDIASIS [None]
  - PSORIATIC ARTHROPATHY [None]
